FAERS Safety Report 15313306 (Version 1)
Quarter: 2018Q3

REPORT INFORMATION
  Report Type: Other
  Country: FR (occurrence: FR)
  Receive Date: 20180823
  Receipt Date: 20180823
  Transmission Date: 20181010
  Serious: Yes (Life-Threatening)
  Sender: FDA-Public Use
  Company Number: FR-DENTSPLY-2018SCDP000374

PATIENT
  Age: 37 Year
  Sex: Female

DRUGS (2)
  1. HYDROCORTANCYL                     /00016201/ [Suspect]
     Active Substance: PREDNISONE
     Indication: JOINT INJECTION
     Dosage: 5 ML, 2.5 PERCENT SUSPENSION INJECTABLE
     Route: 014
     Dates: start: 20170928, end: 20170928
  2. XYLOCAINE WITH ADRENALINE (EPINEPHRINE) [Suspect]
     Active Substance: EPINEPHRINE BITARTRATE\LIDOCAINE HYDROCHLORIDE
     Indication: INJECTION SITE ANAESTHESIA
     Dosage: 5 ML, UNK
     Route: 014
     Dates: start: 20170928, end: 20170928

REACTIONS (1)
  - Angioedema [Recovered/Resolved]

NARRATIVE: CASE EVENT DATE: 20170928
